FAERS Safety Report 5937970-6 (Version None)
Quarter: 2008Q4

REPORT INFORMATION
  Report Type: 
  Country: None (occurrence: None)
  Receive Date: 20081031
  Receipt Date: 20081021
  Transmission Date: 20090506
  Serious: Yes (Hospitalization)
  Sender: FDA-Public Use
  Company Number: CO-PFIZER INC-2008066800

PATIENT
  Sex: Female
  Weight: 60 kg

DRUGS (5)
  1. SUTENT [Suspect]
     Indication: BREAST CANCER
     Route: 048
     Dates: start: 20070825, end: 20080801
  2. LOPERAMIDE HCL [Concomitant]
     Route: 048
     Dates: start: 20080514
  3. ACETAMINOPHEN [Concomitant]
     Route: 048
     Dates: start: 20071010
  4. TRAMADOL HCL [Concomitant]
     Route: 048
     Dates: start: 20080328
  5. METOPROLOL TARTRATE [Concomitant]
     Route: 048
     Dates: start: 20080129

REACTIONS (1)
  - CARDIAC FAILURE [None]
